FAERS Safety Report 5254856-3 (Version None)
Quarter: 2007Q1

REPORT INFORMATION
  Report Type: 
  Country: None (occurrence: None)
  Receive Date: 20070305
  Receipt Date: 20070220
  Transmission Date: 20070707
  Serious: Yes (Hospitalization)
  Sender: FDA-Public Use
  Company Number: JP-BRISTOL-MYERS SQUIBB COMPANY-13689559

PATIENT
  Age: 85 Year
  Sex: Female

DRUGS (13)
  1. MAXIPIME [Suspect]
     Indication: PNEUMONIA
     Route: 041
     Dates: start: 20070124, end: 20070126
  2. THEOLONG [Concomitant]
     Route: 048
     Dates: start: 20070124, end: 20070127
  3. MEPTIN [Concomitant]
     Route: 048
     Dates: start: 20070124, end: 20070127
  4. ENOXACIN [Concomitant]
     Route: 048
     Dates: start: 20070127, end: 20070128
  5. KREMEZIN [Concomitant]
     Route: 048
     Dates: start: 20060925, end: 20070128
  6. DIPROPHYLLINE [Concomitant]
     Route: 041
     Dates: start: 20070124, end: 20070128
  7. CARDENALIN [Concomitant]
     Route: 048
     Dates: start: 20060925, end: 20070128
  8. FERROMIA [Concomitant]
     Route: 048
     Dates: start: 20060925, end: 20070128
  9. MICARDIS [Concomitant]
     Route: 048
     Dates: start: 20060925, end: 20070128
  10. ADALAT [Concomitant]
     Route: 048
     Dates: start: 20060925, end: 20070128
  11. LASIX [Concomitant]
     Route: 048
     Dates: start: 20060925, end: 20070128
  12. ALLOPURINOL [Concomitant]
     Route: 048
     Dates: start: 20060925, end: 20070128
  13. ASPIRIN [Concomitant]
     Route: 048
     Dates: start: 20060925, end: 20070125

REACTIONS (3)
  - DEPRESSED LEVEL OF CONSCIOUSNESS [None]
  - EXTRAPYRAMIDAL DISORDER [None]
  - PSEUDOMEMBRANOUS COLITIS [None]
